FAERS Safety Report 24604796 (Version 1)
Quarter: 2024Q4

REPORT INFORMATION
  Report Type: Spontaneous
  Country: JP (occurrence: JP)
  Receive Date: 20241111
  Receipt Date: 20241111
  Transmission Date: 20250115
  Serious: Yes (Other)
  Sender: PFIZER
  Company Number: JP-PFIZER INC-PV202400144557

PATIENT
  Age: 70 Year
  Sex: Male

DRUGS (1)
  1. BOSULIF [Suspect]
     Active Substance: BOSUTINIB MONOHYDRATE
     Indication: Chronic myeloid leukaemia
     Route: 048

REACTIONS (3)
  - Vertebrobasilar artery dissection [Recovered/Resolved]
  - Cerebellar infarction [Recovered/Resolved]
  - Headache [Recovered/Resolved]
